FAERS Safety Report 6171575-X (Version None)
Quarter: 2009Q2

REPORT INFORMATION
  Report Type: 
  Country: None (occurrence: None)
  Receive Date: 20090429
  Receipt Date: 20090428
  Transmission Date: 20091009
  Serious: Yes (Other)
  Sender: FDA-Public Use
  Company Number: US-BAYER-200833328NA

PATIENT
  Age: 75 Year
  Sex: Male
  Weight: 57 kg

DRUGS (9)
  1. NEXAVAR [Suspect]
     Indication: RENAL CELL CARCINOMA
     Dosage: AS USED: 400/200 MG  UNIT DOSE: 200 MG
     Route: 048
     Dates: start: 20080418, end: 20080826
  2. ASPIRIN [Concomitant]
  3. CALCIUM SUPPLEMENT [Concomitant]
  4. CARVEDILOL [Concomitant]
  5. FLUTICASONE INHALER [Concomitant]
  6. SYNTHROID [Concomitant]
  7. LISINOPRIL [Concomitant]
  8. ZANTAC [Concomitant]
  9. SIMVASTATIN [Concomitant]

REACTIONS (4)
  - BLINDNESS [None]
  - PRURITUS [None]
  - RASH GENERALISED [None]
  - RASH PUSTULAR [None]
